FAERS Safety Report 23643606 (Version 1)
Quarter: 2024Q1

REPORT INFORMATION
  Report Type: Spontaneous
  Country: GB (occurrence: GB)
  Receive Date: 20240318
  Receipt Date: 20240318
  Transmission Date: 20240410
  Serious: Yes (Other)
  Sender: FDA-Public Use
  Company Number: GB-MYLANLABS-2023M1136356

PATIENT
  Age: 60 Year
  Sex: Female
  Weight: 78.2 kg

DRUGS (7)
  1. TOBI PODHALER [Suspect]
     Active Substance: TOBRAMYCIN
     Indication: Cystic fibrosis
     Dosage: 112 MILLIGRAM, BID
     Route: 055
     Dates: start: 202304
  2. TOBI PODHALER [Suspect]
     Active Substance: TOBRAMYCIN
     Dosage: 112 MILLIGRAM, BID
     Route: 055
     Dates: start: 202304
  3. STREPTODORNASE\STREPTOKINASE [Concomitant]
     Active Substance: STREPTODORNASE\STREPTOKINASE
     Indication: Cystic fibrosis
     Dosage: 2.5 MILLIGRAM, QD
     Route: 055
  4. Luforbec [Concomitant]
     Indication: Cystic fibrosis
     Dosage: UNK
     Route: 055
  5. CREON [Concomitant]
     Active Substance: PANCRELIPASE AMYLASE\PANCRELIPASE LIPASE\PANCRELIPASE PROTEASE
     Indication: Cystic fibrosis
     Dosage: UNK
     Route: 048
  6. CALCIUM CARBONATE\CHOLECALCIFEROL [Concomitant]
     Active Substance: CALCIUM CARBONATE\CHOLECALCIFEROL
     Indication: Cystic fibrosis
     Dosage: UNK
     Route: 048
  7. MOVICOL [Concomitant]
     Active Substance: POLYETHYLENE GLYCOL 3350\POTASSIUM CHLORIDE\SODIUM BICARBONATE\SODIUM CHLORIDE
     Indication: Cystic fibrosis
     Dosage: UNK
     Route: 048

REACTIONS (1)
  - Transaminases increased [Recovered/Resolved]

NARRATIVE: CASE EVENT DATE: 20231208
